FAERS Safety Report 9331030 (Version 3)
Quarter: 2014Q3

REPORT INFORMATION
  Report Type: Report from Study
  Country: JP (occurrence: JP)
  Receive Date: 20130605
  Receipt Date: 20140702
  Transmission Date: 20150326
  Serious: Yes (Hospitalization, Other)
  Sender: FDA-Public Use
  Company Number: JP-JNJFOC-20130517322

PATIENT
  Age: 43 Year
  Sex: Female
  Weight: 47 kg

DRUGS (23)
  1. BAKTAR [Concomitant]
     Active Substance: SULFAMETHOXAZOLE\TRIMETHOPRIM
     Indication: PROPHYLAXIS
     Route: 048
     Dates: start: 20121002
  2. ONCOVIN [Suspect]
     Active Substance: VINCRISTINE SULFATE
     Indication: PRODUCT USED FOR UNKNOWN INDICATION
     Dosage: 4230 U
     Route: 065
     Dates: start: 20121008, end: 20121022
  3. POLYMYXIN B SULFATE [Concomitant]
     Active Substance: POLYMYXIN B SULFATE
     Indication: PROPHYLAXIS
     Dosage: 30000000U
     Route: 048
     Dates: start: 20120930, end: 20121121
  4. SOSEGON (PENTAZOCINE) [Concomitant]
     Route: 065
     Dates: start: 20121030, end: 20121031
  5. GASTER [Concomitant]
     Active Substance: FAMOTIDINE
     Indication: PROPHYLAXIS
     Route: 048
     Dates: start: 20120930, end: 20121029
  6. PREDONINE [Concomitant]
     Active Substance: PREDNISOLONE\PREDNISOLONE ACETATE\PREDNISOLONE SODIUM SUCCINATE
     Dosage: 85 MG TO 5 MG
     Route: 048
     Dates: start: 20121001, end: 20121028
  7. FIRSTCIN [Concomitant]
     Active Substance: CEFOZOPRAN HYDROCHLORIDE
     Route: 065
     Dates: start: 20121209, end: 20121217
  8. ULCERLMIN [Concomitant]
     Active Substance: SUCRALFATE
     Indication: PRODUCT USED FOR UNKNOWN INDICATION
     Route: 048
     Dates: start: 20121030, end: 20121107
  9. VEPESID [Concomitant]
     Active Substance: ETOPOSIDE
     Route: 065
     Dates: start: 20121126, end: 20121128
  10. DECADRON [Concomitant]
     Active Substance: DEXAMETHASONE
     Route: 065
     Dates: start: 20121126, end: 20121128
  11. PANTOSIN [Concomitant]
     Active Substance: PANTETHINE
     Indication: PROPHYLAXIS
     Route: 048
     Dates: start: 20121006, end: 20121107
  12. BENET [Concomitant]
     Active Substance: RISEDRONIC ACID
     Indication: PROPHYLAXIS
     Route: 048
     Dates: start: 20121005
  13. ALOSITOL [Concomitant]
     Active Substance: ALLOPURINOL
     Indication: PROPHYLAXIS
     Route: 048
     Dates: start: 20120930, end: 20121010
  14. KYTRIL [Concomitant]
     Active Substance: GRANISETRON HYDROCHLORIDE
     Route: 065
     Dates: start: 20121001, end: 20121022
  15. L-ASPARAGINASE [Suspect]
     Active Substance: ASPARAGINASE
     Indication: PRODUCT USED FOR UNKNOWN INDICATION
     Dosage: 4230 U
     Route: 065
     Dates: start: 20121009, end: 20121020
  16. CYLOCIDE [Suspect]
     Active Substance: CYTARABINE
     Indication: PRODUCT USED FOR UNKNOWN INDICATION
     Dosage: 4230 U
     Route: 065
     Dates: start: 20121126, end: 20121128
  17. MAGNESIUM OXIDE. [Concomitant]
     Active Substance: MAGNESIUM OXIDE
     Indication: PROPHYLAXIS
     Route: 048
     Dates: start: 20121006
  18. NEUTROGIN [Concomitant]
     Active Substance: LENOGRASTIM
     Route: 065
     Dates: start: 20121010, end: 20121013
  19. ITRIZOLE [Suspect]
     Active Substance: ITRACONAZOLE
     Indication: ANTIFUNGAL PROPHYLAXIS
     Route: 048
     Dates: start: 20121004
  20. TAKEPRON [Concomitant]
     Active Substance: LANSOPRAZOLE
     Indication: PROPHYLAXIS
     Route: 048
     Dates: start: 20121030, end: 20121121
  21. FIRSTCIN [Concomitant]
     Active Substance: CEFOZOPRAN HYDROCHLORIDE
     Route: 065
     Dates: start: 20121012, end: 20121022
  22. ANTHROBIN [Concomitant]
     Dosage: 1000LU
     Route: 065
     Dates: start: 20121019, end: 20121030
  23. AMIKACIN SULFATE. [Concomitant]
     Active Substance: AMIKACIN SULFATE
     Route: 065
     Dates: start: 20121209, end: 20121217

REACTIONS (7)
  - Hepatic steatosis [Recovering/Resolving]
  - Abdominal pain [Recovered/Resolved]
  - Constipation [Recovered/Resolved]
  - Liver disorder [Recovering/Resolving]
  - Disseminated intravascular coagulation [Recovered/Resolved]
  - Neutropenia [Recovered/Resolved]
  - Febrile neutropenia [Recovered/Resolved]

NARRATIVE: CASE EVENT DATE: 20121008
